FAERS Safety Report 7554642-5 (Version None)
Quarter: 2011Q2

REPORT INFORMATION
  Report Type: 
  Country: None (occurrence: None)
  Receive Date: 20110617
  Receipt Date: 20110523
  Transmission Date: 20111010
  Serious: No
  Sender: FDA-Public Use
  Company Number: US-MYLANLABS-2011S1010786

PATIENT
  Sex: Female

DRUGS (1)
  1. NIFEDIPINE [Suspect]

REACTIONS (1)
  - FEELING ABNORMAL [None]
